FAERS Safety Report 4387431-3 (Version None)
Quarter: 2004Q2

REPORT INFORMATION
  Report Type: 
  Country: None (occurrence: None)
  Receive Date: 20040630
  Receipt Date: 20040107
  Transmission Date: 20050107
  Serious: No
  Sender: FDA-Public Use
  Company Number: US-GLAXOSMITHKLINE-A0491978A

PATIENT
  Age: 57 Year
  Sex: Female

DRUGS (12)
  1. ADVAIR HFA [Suspect]
     Indication: ASTHMA
     Dosage: 1PUFF TWICE PER DAY
     Route: 055
  2. FLONASE [Concomitant]
     Dosage: 2SPR UNKNOWN
     Route: 045
  3. ALLEGRA [Concomitant]
     Dosage: 180MG AS REQUIRED
     Route: 048
  4. IPRATROPIUM BROMIDE [Concomitant]
     Route: 065
  5. PULMICORT RESPULES [Concomitant]
     Dosage: .5U TWICE PER DAY
     Route: 065
  6. SINGULAIR [Concomitant]
     Dosage: 10MG PER DAY
  7. INTAL [Concomitant]
     Dosage: 2PUFF THREE TIMES PER DAY
     Route: 055
  8. THEO-24 [Concomitant]
     Dosage: 400MG PER DAY
     Route: 048
  9. MUCINEX [Concomitant]
     Dosage: 600MG TWICE PER DAY
     Route: 048
  10. PROTONIX [Concomitant]
     Dosage: 40MG TWICE PER DAY
     Route: 065
  11. COMBIVENT [Concomitant]
     Dosage: 2PUFF AS REQUIRED
     Route: 055
  12. PREDNISONE [Concomitant]

REACTIONS (2)
  - DRUG INEFFECTIVE [None]
  - DYSPNOEA [None]
